FAERS Safety Report 14546912 (Version 13)
Quarter: 2018Q3

REPORT INFORMATION
  Report Type: Spontaneous
  Country: US (occurrence: US)
  Receive Date: 20180219
  Receipt Date: 20180904
  Transmission Date: 20181010
  Serious: Yes (Hospitalization, Other)
  Sender: FDA-Public Use
  Company Number: US-PFIZER INC-2018065907

PATIENT
  Age: 79 Year
  Sex: Female
  Weight: 53 kg

DRUGS (13)
  1. SUTENT [Suspect]
     Active Substance: SUNITINIB MALATE
     Dosage: 25 MG, DAILY
     Dates: start: 20180809
  2. SUTENT [Suspect]
     Active Substance: SUNITINIB MALATE
     Indication: GASTROINTESTINAL STROMAL TUMOUR
     Dosage: 50 MG, DAILY
     Dates: start: 20180204, end: 20180218
  3. ELIQUIS [Concomitant]
     Active Substance: APIXABAN
     Dosage: UNK
  4. ZOLOFT [Concomitant]
     Active Substance: SERTRALINE HYDROCHLORIDE
     Dosage: UNK
  5. SUTENT [Suspect]
     Active Substance: SUNITINIB MALATE
     Dosage: 25 MG, DAILY
     Dates: start: 20180313, end: 20180731
  6. STOOL SOFTENER (DOCUSATE) [Concomitant]
     Active Substance: DOCUSATE
     Dosage: UNK
  7. PYLERA [Concomitant]
     Active Substance: BISMUTH SUBCITRATE POTASSIUM\METRONIDAZOLE\TETRACYCLINE HYDROCHLORIDE
  8. SUTENT [Suspect]
     Active Substance: SUNITINIB MALATE
     Indication: RENAL CANCER STAGE IV
     Dosage: 50 MG, ALTERNATE DAY (EVERY OTHER DAY)
     Dates: start: 20180313
  9. POTASSIUM [Concomitant]
     Active Substance: POTASSIUM
     Dosage: UNK
  10. DILTIAZEM. [Concomitant]
     Active Substance: DILTIAZEM
     Dosage: UNK
  11. PROTONIX [Concomitant]
     Active Substance: PANTOPRAZOLE SODIUM
     Dosage: UNK
  12. LEVOTHYROXINE. [Concomitant]
     Active Substance: LEVOTHYROXINE
     Dosage: UNK
  13. MIRACLE MINERAL SOLUTION [Concomitant]
     Active Substance: SODIUM CHLORITE
     Dosage: UNK

REACTIONS (31)
  - Weight decreased [Unknown]
  - Aphthous ulcer [Unknown]
  - Thyroid disorder [Unknown]
  - Glossodynia [Not Recovered/Not Resolved]
  - Salivary hypersecretion [Unknown]
  - Vomiting [Unknown]
  - Fatigue [Recovering/Resolving]
  - Somnolence [Unknown]
  - Pruritus [Unknown]
  - Gastric haemorrhage [Unknown]
  - Asthenia [Not Recovered/Not Resolved]
  - Balance disorder [Not Recovered/Not Resolved]
  - Decreased appetite [Recovering/Resolving]
  - Feeling abnormal [Unknown]
  - Faeces discoloured [Recovered/Resolved]
  - Drug dose omission [Unknown]
  - Rhinorrhoea [Unknown]
  - Syncope [Unknown]
  - Dehydration [Not Recovered/Not Resolved]
  - Lacrimation increased [Unknown]
  - Neoplasm progression [Unknown]
  - Nail discomfort [Unknown]
  - Hyperhidrosis [Unknown]
  - Gastrointestinal viral infection [Unknown]
  - Blood potassium decreased [Unknown]
  - Dizziness [Unknown]
  - Arthralgia [Not Recovered/Not Resolved]
  - Oral pain [Unknown]
  - Malaise [Unknown]
  - Blood count abnormal [Unknown]
  - Blood magnesium decreased [Unknown]

NARRATIVE: CASE EVENT DATE: 201802
